FAERS Safety Report 4526476-7 (Version None)
Quarter: 2004Q4

REPORT INFORMATION
  Report Type: 
  Country: None (occurrence: None)
  Receive Date: 20041214
  Receipt Date: 20041118
  Transmission Date: 20050328
  Serious: Yes (Hospitalization)
  Sender: FDA-Public Use
  Company Number: JP-MERCK-0411USA03498

PATIENT
  Age: 40 Year
  Sex: Male
  Weight: 87 kg

DRUGS (12)
  1. COZAAR [Suspect]
     Indication: HYPERTENSION
     Route: 048
     Dates: start: 20041023, end: 20041111
  2. LIPANTIL [Suspect]
     Indication: TYPE V HYPERLIPIDAEMIA
     Route: 048
     Dates: end: 20041110
  3. CONIEL [Concomitant]
     Indication: HYPERTENSION
     Route: 048
  4. LONGES [Concomitant]
     Indication: HYPERTENSION
     Route: 048
  5. CARDENALIN [Concomitant]
     Indication: HYPERTENSION
     Route: 048
  6. ACTOS [Concomitant]
     Indication: DIABETES MELLITUS
     Route: 048
     Dates: start: 20041026, end: 20041111
  7. GLUCOBAY [Concomitant]
     Indication: DIABETES MELLITUS
     Route: 048
     Dates: start: 20041022
  8. METFORMIN HYDROCHLORIDE [Concomitant]
     Indication: DIABETES MELLITUS NON-INSULIN-DEPENDENT
     Route: 048
     Dates: end: 20041110
  9. ETHYL ICOSAPENTATE [Concomitant]
     Route: 065
  10. BENZBROMARONE [Concomitant]
     Route: 048
     Dates: end: 20041111
  11. GLIMEPIRIDE [Concomitant]
     Route: 065
     Dates: end: 20041029
  12. ASPIRIN [Concomitant]
     Route: 065
     Dates: start: 20041031

REACTIONS (3)
  - BLOOD CREATINE PHOSPHOKINASE INCREASED [None]
  - MYOGLOBIN BLOOD INCREASED [None]
  - RHABDOMYOLYSIS [None]
